FAERS Safety Report 18615777 (Version 1)
Quarter: 2020Q4

REPORT INFORMATION
  Report Type: Spontaneous
  Country: SE (occurrence: SE)
  Receive Date: 20201214
  Receipt Date: 20201214
  Transmission Date: 20210114
  Serious: Yes (Other)
  Sender: FDA-Public Use
  Company Number: NVSC2020SE327010

PATIENT
  Sex: Female
  Weight: 38 kg

DRUGS (1)
  1. FLUOXETINE [Suspect]
     Active Substance: FLUOXETINE HYDROCHLORIDE
     Indication: DEPRESSION
     Dosage: 20 MG
     Route: 065

REACTIONS (3)
  - Mood swings [Recovering/Resolving]
  - Depression [Recovering/Resolving]
  - Euphoric mood [Recovering/Resolving]
